FAERS Safety Report 5982426-8 (Version None)
Quarter: 2008Q4

REPORT INFORMATION
  Report Type: 
  Country: None (occurrence: None)
  Receive Date: 20081208
  Receipt Date: 20080228
  Transmission Date: 20090506
  Serious: No
  Sender: FDA-Public Use
  Company Number: US-AMGEN-KDL264372

PATIENT
  Sex: Female
  Weight: 104.4 kg

DRUGS (1)
  1. ENBREL [Suspect]
     Indication: PSORIASIS
     Route: 058
     Dates: start: 20080122

REACTIONS (4)
  - COUGH [None]
  - OROPHARYNGEAL PAIN [None]
  - SINUS HEADACHE [None]
  - SNEEZING [None]
